FAERS Safety Report 26152494 (Version 1)
Quarter: 2025Q4

REPORT INFORMATION
  Report Type: Spontaneous
  Country: EU (occurrence: EU)
  Receive Date: 20251214
  Receipt Date: 20251214
  Transmission Date: 20260118
  Serious: Yes (Other)
  Sender: GILEAD
  Company Number: EU-EMA-20251104-AUTODUP-1762291552877

PATIENT
  Age: 34 Year
  Sex: Female
  Weight: 48 kg

DRUGS (6)
  1. TRUVADA [Suspect]
     Active Substance: EMTRICITABINE\TENOFOVIR DISOPROXIL FUMARATE
     Indication: HIV infection
     Dosage: 1 DF, QD
     Route: 048
     Dates: start: 20250414, end: 20250515
  2. VOCABRIA [Suspect]
     Active Substance: CABOTEGRAVIR SODIUM
     Indication: HIV infection
     Dosage: UNK, MO 600
     Route: 030
     Dates: start: 20250414
  3. VOCABRIA [Suspect]
     Active Substance: CABOTEGRAVIR SODIUM
     Dosage: UNK, Q2M 600
     Route: 030
  4. RILPIVIRINE [Suspect]
     Active Substance: RILPIVIRINE
     Indication: HIV infection
     Dosage: UNK, MO 900
     Route: 030
     Dates: start: 20250414
  5. RILPIVIRINE [Suspect]
     Active Substance: RILPIVIRINE
     Dosage: UNK, Q2M, 900
     Route: 030
  6. CHOLECALCIFEROL [Concomitant]
     Active Substance: CHOLECALCIFEROL
     Indication: Product used for unknown indication
     Dosage: 12 MG, MO, 50000UI
     Route: 048
     Dates: start: 2022

REACTIONS (3)
  - Viral load increased [Not Recovered/Not Resolved]
  - Viral mutation identified [Unknown]
  - Labelled drug-drug interaction medication error [Unknown]

NARRATIVE: CASE EVENT DATE: 20250414
